FAERS Safety Report 7705561-2 (Version None)
Quarter: 2011Q3

REPORT INFORMATION
  Report Type: 
  Country: None (occurrence: None)
  Receive Date: 20110824
  Receipt Date: 20110815
  Transmission Date: 20111222
  Serious: Yes (Life-Threatening, Other)
  Sender: FDA-Public Use
  Company Number: CA-JNJFOC-20110704326

PATIENT
  Sex: Female
  Weight: 85 kg

DRUGS (11)
  1. REMICADE [Suspect]
     Indication: PSORIATIC ARTHROPATHY
     Route: 042
     Dates: start: 20110609
  2. VENLAFAXINE HCL EXTENDED-RELEASE [Concomitant]
  3. LACTULOSE [Concomitant]
  4. REMICADE [Suspect]
     Indication: ANKYLOSING SPONDYLITIS
     Route: 042
     Dates: start: 20110609
  5. ZOPICLONE [Concomitant]
  6. PREDNISONE TAB [Concomitant]
  7. QUETIAPINE [Concomitant]
  8. DIMENHYDRINATE [Concomitant]
     Dosage: PRN
  9. HYDROMORPHONE HCL [Concomitant]
  10. PANTOPRAZOLE [Concomitant]
     Dosage: BEFORE MEALS
  11. LAMOTRIGINE [Concomitant]

REACTIONS (4)
  - ARTHRALGIA [None]
  - JOINT SWELLING [None]
  - MOBILITY DECREASED [None]
  - SWELLING FACE [None]
